FAERS Safety Report 13700554 (Version 3)
Quarter: 2017Q3

REPORT INFORMATION
  Report Type: Spontaneous
  Country: JP (occurrence: JP)
  Receive Date: 20170629
  Receipt Date: 20170717
  Transmission Date: 20171127
  Serious: Yes (Hospitalization)
  Sender: FDA-Public Use
  Company Number: JP-ASTRAZENECA-2017SE28989

PATIENT
  Age: 96 Year
  Sex: Female
  Weight: 41 kg

DRUGS (18)
  1. CELECOX [Concomitant]
     Active Substance: CELECOXIB
     Dates: start: 201611, end: 20170308
  2. ROHYPNOL [Suspect]
     Active Substance: FLUNITRAZEPAM
     Indication: DEMENTIA ALZHEIMER^S TYPE
     Route: 048
     Dates: start: 201612, end: 20170308
  3. RISPERDAL [Suspect]
     Active Substance: RISPERIDONE
     Indication: ANGER
     Route: 048
     Dates: start: 201612, end: 20170308
  4. LANSOPRAZOLE. [Concomitant]
     Active Substance: LANSOPRAZOLE
     Dates: start: 201611, end: 20170308
  5. SEROQUEL [Suspect]
     Active Substance: QUETIAPINE FUMARATE
     Indication: DEMENTIA ALZHEIMER^S TYPE
     Route: 048
     Dates: start: 201612, end: 20170308
  6. GRAMALIL [Suspect]
     Active Substance: TIAPRIDE HYDROCHLORIDE
     Indication: ANGER
     Dosage: 25 MG, TWICE DAILY, AFTER BREAKFAST AND SUPPER
     Route: 048
     Dates: start: 20120223, end: 20161102
  7. MAGNESIUM OXIDE. [Concomitant]
     Active Substance: MAGNESIUM OXIDE
     Dates: start: 201611, end: 20170308
  8. GRAMALIL [Suspect]
     Active Substance: TIAPRIDE HYDROCHLORIDE
     Indication: DEMENTIA ALZHEIMER^S TYPE
     Route: 048
     Dates: start: 201612, end: 20170308
  9. RISPERDAL [Suspect]
     Active Substance: RISPERIDONE
     Indication: DEMENTIA ALZHEIMER^S TYPE
     Route: 048
     Dates: start: 201612, end: 20170308
  10. RISPERDAL [Suspect]
     Active Substance: RISPERIDONE
     Indication: AGGRESSION
     Route: 048
     Dates: start: 201612, end: 20170308
  11. SEROQUEL [Suspect]
     Active Substance: QUETIAPINE FUMARATE
     Indication: AGGRESSION
     Route: 048
     Dates: start: 201612, end: 20170308
  12. GRAMALIL [Suspect]
     Active Substance: TIAPRIDE HYDROCHLORIDE
     Indication: ANGER
     Route: 048
     Dates: start: 201612, end: 20170308
  13. GRAMALIL [Suspect]
     Active Substance: TIAPRIDE HYDROCHLORIDE
     Indication: AGGRESSION
     Route: 048
     Dates: start: 201612, end: 20170308
  14. GRAMALIL [Suspect]
     Active Substance: TIAPRIDE HYDROCHLORIDE
     Indication: DEMENTIA ALZHEIMER^S TYPE
     Dosage: 25 MG, TWICE DAILY, AFTER BREAKFAST AND SUPPER
     Route: 048
     Dates: start: 20120223, end: 20161102
  15. GRAMALIL [Suspect]
     Active Substance: TIAPRIDE HYDROCHLORIDE
     Indication: AGGRESSION
     Dosage: 25 MG, TWICE DAILY, AFTER BREAKFAST AND SUPPER
     Route: 048
     Dates: start: 20120223, end: 20161102
  16. ROHYPNOL [Suspect]
     Active Substance: FLUNITRAZEPAM
     Indication: AGGRESSION
     Route: 048
     Dates: start: 201612, end: 20170308
  17. SEROQUEL [Suspect]
     Active Substance: QUETIAPINE FUMARATE
     Indication: ANGER
     Route: 048
     Dates: start: 201612, end: 20170308
  18. ROHYPNOL [Suspect]
     Active Substance: FLUNITRAZEPAM
     Indication: ANGER
     Route: 048
     Dates: start: 201612, end: 20170308

REACTIONS (7)
  - Pneumonia aspiration [Recovered/Resolved]
  - Dysphagia [Recovered/Resolved]
  - Decubitus ulcer [Recovering/Resolving]
  - Sedation complication [Recovered/Resolved]
  - Off label use [Recovered/Resolved]
  - Acute respiratory distress syndrome [Recovered/Resolved]
  - Somnolence [Recovered/Resolved]

NARRATIVE: CASE EVENT DATE: 201612
